FAERS Safety Report 14383299 (Version 1)
Quarter: 2018Q1

REPORT INFORMATION
  Report Type: Spontaneous
  Country: CZ (occurrence: CZ)
  Receive Date: 20180115
  Receipt Date: 20180115
  Transmission Date: 20180509
  Serious: Yes (Other)
  Sender: FDA-Public Use
  Company Number: CZ-CIPLA LTD.-2018CZ00017

PATIENT

DRUGS (3)
  1. DEPAKINE [Suspect]
     Active Substance: VALPROATE SODIUM
     Indication: EPILEPSY
     Dosage: (300MG/L), 12 HOURLY
     Route: 065
  2. LEVETIRACETAM. [Suspect]
     Active Substance: LEVETIRACETAM
     Indication: EPILEPSY
     Dosage: (300MG/L), 12 HOURLY
     Route: 065
  3. TOPIRAMATE. [Suspect]
     Active Substance: TOPIRAMATE
     Indication: EPILEPSY
     Dosage: 12.5 MG, 12 HOURLY
     Route: 065
     Dates: start: 20170617

REACTIONS (3)
  - Haematoma [Unknown]
  - Psychomotor hyperactivity [Unknown]
  - Attention deficit/hyperactivity disorder [Unknown]
